FAERS Safety Report 9769639 (Version 3)
Quarter: 2014Q1

REPORT INFORMATION
  Report Type: Report from Study
  Country: CA (occurrence: CA)
  Receive Date: 20131218
  Receipt Date: 20140317
  Transmission Date: 20141002
  Serious: Yes (Other)
  Sender: FDA-Public Use
  Company Number: CA-ABBVIE-13P-028-1179961-00

PATIENT
  Sex: Female

DRUGS (4)
  1. HUMIRA [Suspect]
     Indication: CROHN^S DISEASE
     Route: 058
     Dates: start: 20120113
  2. HUMIRA [Suspect]
     Route: 058
     Dates: end: 201310
  3. LANSOPRAZOLE [Concomitant]
     Indication: PRODUCT USED FOR UNKNOWN INDICATION
  4. MULTIVITAMIN [Concomitant]
     Indication: PRODUCT USED FOR UNKNOWN INDICATION

REACTIONS (17)
  - Blindness unilateral [Recovered/Resolved]
  - Hypoaesthesia [Recovering/Resolving]
  - Vision blurred [Recovering/Resolving]
  - Visual impairment [Recovering/Resolving]
  - Anal fissure [Not Recovered/Not Resolved]
  - Paraesthesia [Recovering/Resolving]
  - Sensory disturbance [Recovering/Resolving]
  - Sensory loss [Recovering/Resolving]
  - Pain in extremity [Recovering/Resolving]
  - Joint instability [Unknown]
  - Headache [Unknown]
  - Paraesthesia [Not Recovered/Not Resolved]
  - Hypovitaminosis [Unknown]
  - Polyneuropathy [Unknown]
  - Photophobia [Unknown]
  - Phonophobia [Unknown]
  - Stress [Unknown]
